FAERS Safety Report 8887736 (Version 1)
Quarter: 2012Q4

REPORT INFORMATION
  Report Type: 
  Country: FR (occurrence: FR)
  Receive Date: 20121106
  Receipt Date: 20121106
  Transmission Date: 20130627
  Serious: Yes (Hospitalization)
  Sender: FDA-Public Use
  Company Number: FR-AMGEN-FRASP2012070135

PATIENT
  Age: 67 Year
  Sex: Male

DRUGS (1)
  1. ARANESP [Suspect]
     Indication: PRODUCT USED FOR UNKNOWN INDICATION
     Dosage: 50 mug, qwk
     Route: 058
     Dates: start: 201202, end: 20120821

REACTIONS (1)
  - Dermatitis exfoliative [Not Recovered/Not Resolved]
